FAERS Safety Report 5117343-9 (Version None)
Quarter: 2006Q3

REPORT INFORMATION
  Report Type: 
  Country: None (occurrence: None)
  Receive Date: 20060927
  Receipt Date: 20060927
  Transmission Date: 20061208
  Serious: No
  Sender: FDA-Public Use
  Company Number: None

PATIENT
  Sex: Male
  Weight: 78.4723 kg

DRUGS (2)
  1. ALIMTA [Suspect]
     Indication: NEOPLASM MALIGNANT
     Dosage: 400 MG IV EVERY 3 WKS
     Route: 042
     Dates: start: 20060829
  2. ERBITUX [Suspect]
     Indication: NEOPLASM MALIGNANT
     Dosage: 500 MG IV EVERY WEEK
     Route: 042
     Dates: start: 20060822

REACTIONS (1)
  - MUCOSAL INFLAMMATION [None]
